FAERS Safety Report 9519492 (Version 2)
Quarter: 2013Q4

REPORT INFORMATION
  Report Type: Spontaneous
  Country: AR (occurrence: AR)
  Receive Date: 20130912
  Receipt Date: 20131127
  Transmission Date: 20140711
  Serious: Yes (Disabling)
  Sender: FDA-Public Use
  Company Number: AR-AMGEN-ARGSP2013064172

PATIENT
  Age: 53 Year
  Sex: Female

DRUGS (10)
  1. ENBREL [Suspect]
     Indication: RHEUMATOID ARTHRITIS
     Dosage: 50 MG, WEEKLY
     Route: 065
     Dates: start: 20130415
  2. PREDNISONE [Concomitant]
     Dosage: 5 MG, 1X/DAY
  3. METHOTREXATE [Concomitant]
     Dosage: 15 MG, WEEKLY
  4. DICLOFENAC [Concomitant]
     Dosage: UNK
  5. OMEPRAZOLE [Concomitant]
     Dosage: 10 MG, 2X/DAY
  6. BIOCAL D CR [Concomitant]
     Dosage: UNK
  7. TRYPTANOL                          /00002202/ [Concomitant]
     Dosage: 25 MG, 2X/DAY
  8. LOSARTAN [Concomitant]
     Indication: HYPERTENSION
     Dosage: 50 MG, 1X/DAY
  9. FLUTICASONE W/SALMETEROL [Concomitant]
     Indication: RESPIRATORY DISORDER
     Dosage: UNK
  10. FOLIC ACID [Concomitant]
     Dosage: UNK

REACTIONS (1)
  - Foot deformity [Recovering/Resolving]
